FAERS Safety Report 7744709-0 (Version None)
Quarter: 2011Q3

REPORT INFORMATION
  Report Type: 
  Country: None (occurrence: None)
  Receive Date: 20110912
  Receipt Date: 20110831
  Transmission Date: 20111222
  Serious: Yes (Other)
  Sender: FDA-Public Use
  Company Number: US-SANOFI-AVENTIS-2011SA058413

PATIENT
  Age: 53 Year
  Sex: Female
  Weight: 79 kg

DRUGS (8)
  1. BENICAR [Concomitant]
  2. AMBIEN CR [Concomitant]
     Dates: end: 20110801
  3. PLAQUENIL [Suspect]
     Route: 048
     Dates: end: 20110101
  4. ABILIFY [Concomitant]
  5. PLAQUENIL [Suspect]
     Route: 048
     Dates: start: 19910101, end: 20080101
  6. ASPIRIN [Concomitant]
  7. NEBIVOLOL HCL [Concomitant]
  8. CRESTOR [Concomitant]

REACTIONS (3)
  - ALOPECIA [None]
  - SJOGREN'S SYNDROME [None]
  - AMNESIA [None]
